FAERS Safety Report 19609382 (Version 1)
Quarter: 2021Q3

REPORT INFORMATION
  Report Type: Spontaneous
  Country: US (occurrence: US)
  Receive Date: 20210726
  Receipt Date: 20210726
  Transmission Date: 20211014
  Serious: Yes (Life-Threatening, Other)
  Sender: FDA-Public Use
  Company Number: None

PATIENT
  Age: 29 Year
  Sex: Male
  Weight: 74.25 kg

DRUGS (1)
  1. INSULIN LISPRO INJECTION U?100. [Suspect]
     Active Substance: INSULIN LISPRO
     Indication: TYPE 1 DIABETES MELLITUS
     Dosage: ?          QUANTITY:65 INJECTION(S);?
     Route: 030
     Dates: start: 20210701

REACTIONS (4)
  - Hyperglycaemia [None]
  - Product substitution issue [None]
  - Glycosylated haemoglobin increased [None]
  - Hypoglycaemia [None]

NARRATIVE: CASE EVENT DATE: 20210726
